FAERS Safety Report 19942515 (Version 1)
Quarter: 2021Q4

REPORT INFORMATION
  Report Type: Spontaneous
  Country: US (occurrence: US)
  Receive Date: 20211008
  Receipt Date: 20211008
  Transmission Date: 20220303
  Serious: Yes (unspecified)
  Sender: FDA-Public Use
  Company Number: None

PATIENT
  Age: 43 Year
  Sex: Female
  Weight: 80.1 kg

DRUGS (1)
  1. ALEMTUZUMAB [Suspect]
     Active Substance: ALEMTUZUMAB
     Indication: Multiple sclerosis
     Dosage: OTHER FREQUENCY:DAILY FOR 3 DAYS;
     Route: 041
     Dates: start: 20210913, end: 20210915

REACTIONS (2)
  - Pain [None]
  - Headache [None]

NARRATIVE: CASE EVENT DATE: 20210913
